FAERS Safety Report 5731180-3 (Version None)
Quarter: 2008Q2

REPORT INFORMATION
  Report Type: 
  Country: None (occurrence: None)
  Receive Date: 20080507
  Receipt Date: 20080411
  Transmission Date: 20081010
  Serious: No
  Sender: FDA-Public Use
  Company Number: US-BOEHRINGER INGELHEIM GMBH, GERMANY-2008-BP-05895BP

PATIENT

DRUGS (2)
  1. SPIRIVA [Suspect]
  2. ADVAIR HFA [Suspect]

REACTIONS (1)
  - SWELLING FACE [None]
